FAERS Safety Report 17826403 (Version 3)
Quarter: 2020Q2

REPORT INFORMATION
  Report Type: Spontaneous
  Country: IT (occurrence: IT)
  Receive Date: 20200527
  Receipt Date: 20200629
  Transmission Date: 20200714
  Serious: Yes (Other)
  Sender: FDA-Public Use
  Company Number: IT-AUROBINDO-AUR-APL-2020-025734

PATIENT
  Age: 23 Year
  Sex: Male
  Weight: 75 kg

DRUGS (1)
  1. AMOXICILLIN / CLAVULANIC ACID AUROBINDO 875/125MG FILM-COATED TABLET [Suspect]
     Active Substance: AMOXICILLIN\CLAVULANIC ACID
     Indication: ANTIBIOTIC PROPHYLAXIS
     Dosage: 1 GRAM, ONCE A DAY
     Route: 048
     Dates: start: 20200511, end: 20200513

REACTIONS (2)
  - Choking [Recovered/Resolved]
  - Dysphagia [Recovered/Resolved]

NARRATIVE: CASE EVENT DATE: 20200512
